FAERS Safety Report 6762462-4 (Version None)
Quarter: 2010Q2

REPORT INFORMATION
  Report Type: 
  Country: None (occurrence: None)
  Receive Date: 20100609
  Receipt Date: 20100528
  Transmission Date: 20101027
  Serious: Yes (Other)
  Sender: FDA-Public Use
  Company Number: FR-GENZYME-FABR-1001199

PATIENT

DRUGS (3)
  1. FABRAZYME [Suspect]
     Indication: FABRY'S DISEASE
     Dosage: 1 MG/KG, Q2W
     Route: 042
  2. FABRAZYME [Suspect]
     Dosage: 1.16 MG/KG, Q2W
     Route: 042
     Dates: start: 20080429, end: 20091015
  3. FABRAZYME [Suspect]
     Dosage: UNK
     Route: 042
     Dates: start: 20091015

REACTIONS (6)
  - CEREBROVASCULAR ACCIDENT [None]
  - CONDITION AGGRAVATED [None]
  - DEAFNESS NEUROSENSORY [None]
  - FABRY'S DISEASE [None]
  - PARAESTHESIA [None]
  - VERTIGO [None]
